FAERS Safety Report 17744894 (Version 7)
Quarter: 2020Q2

REPORT INFORMATION
  Report Type: Spontaneous
  Country: US (occurrence: US)
  Receive Date: 20200505
  Receipt Date: 20200616
  Transmission Date: 20200714
  Serious: Yes (Other)
  Sender: FDA-Public Use
  Company Number: US-PFIZER INC-2020179237

PATIENT
  Age: 37 Year
  Sex: Female
  Weight: 107.05 kg

DRUGS (2)
  1. LYRICA [Suspect]
     Active Substance: PREGABALIN
     Dosage: 100 MG, 2X/DAY
  2. LYRICA [Suspect]
     Active Substance: PREGABALIN
     Indication: RHEUMATOID ARTHRITIS
     Dosage: 100 MG, 3X/DAY
     Route: 048
     Dates: start: 2015, end: 202005

REACTIONS (15)
  - Depression [Unknown]
  - Therapeutic response unexpected [Unknown]
  - Paraesthesia [Unknown]
  - Feeling abnormal [Unknown]
  - Arthralgia [Unknown]
  - Limb discomfort [Unknown]
  - Pain in extremity [Unknown]
  - Withdrawal syndrome [Unknown]
  - Malaise [Unknown]
  - Anxiety [Unknown]
  - Loss of personal independence in daily activities [Unknown]
  - Heart rate increased [Unknown]
  - Gait disturbance [Unknown]
  - Off label use [Unknown]
  - Product use in unapproved indication [Unknown]

NARRATIVE: CASE EVENT DATE: 2015
